FAERS Safety Report 7712855-3 (Version None)
Quarter: 2011Q3

REPORT INFORMATION
  Report Type: 
  Country: None (occurrence: None)
  Receive Date: 20110826
  Receipt Date: 20110816
  Transmission Date: 20111222
  Serious: Yes (Other)
  Sender: FDA-Public Use
  Company Number: PHHY2010CA76364

PATIENT
  Sex: Female

DRUGS (1)
  1. SANDOSTATIN LAR [Suspect]
     Indication: CARCINOID SYNDROME
     Dosage: 80 MG, QW4
     Route: 030
     Dates: start: 20080428

REACTIONS (5)
  - FALL [None]
  - CONTUSION [None]
  - INJECTION SITE MASS [None]
  - MYALGIA [None]
  - PAIN [None]
